FAERS Safety Report 7396775-2 (Version None)
Quarter: 2011Q2

REPORT INFORMATION
  Report Type: 
  Country: None (occurrence: None)
  Receive Date: 20110406
  Receipt Date: 20110328
  Transmission Date: 20111010
  Serious: Yes (Hospitalization, Other)
  Sender: FDA-Public Use
  Company Number: DE-ROCHE-769402

PATIENT
  Sex: Male
  Weight: 75 kg

DRUGS (1)
  1. TOCILIZUMAB [Suspect]
     Indication: RHEUMATOID ARTHRITIS
     Route: 042
     Dates: start: 20110228

REACTIONS (6)
  - PRURITUS [None]
  - HYPERSENSITIVITY [None]
  - RASH [None]
  - NASOPHARYNGITIS [None]
  - PYREXIA [None]
  - ARTHROPATHY [None]
